FAERS Safety Report 4687798-2 (Version None)
Quarter: 2005Q2

REPORT INFORMATION
  Report Type: 
  Country: None (occurrence: None)
  Receive Date: 20050610
  Receipt Date: 20050602
  Transmission Date: 20051028
  Serious: Yes (Hospitalization)
  Sender: FDA-Public Use
  Company Number: PHFR2005GB02036

PATIENT
  Age: 26 Year
  Sex: Female

DRUGS (2)
  1. SYNTOCINON [Suspect]
     Dosage: 10 IU IN 500 MLS SALINE
     Dates: start: 20050529, end: 20050529
  2. DINOPROSTONE [Suspect]
     Indication: LABOUR INDUCTION
     Dosage: 3 MG
     Route: 067
     Dates: start: 20050528, end: 20050528

REACTIONS (5)
  - CAESAREAN SECTION [None]
  - DELAYED DELIVERY [None]
  - FOETAL DISTRESS SYNDROME [None]
  - POSTPARTUM HAEMORRHAGE [None]
  - VENTOUSE EXTRACTION [None]
